FAERS Safety Report 5523937-9 (Version None)
Quarter: 2007Q4

REPORT INFORMATION
  Report Type: 
  Country: None (occurrence: None)
  Receive Date: 20071121
  Receipt Date: 20071120
  Transmission Date: 20080405
  Serious: Yes (Hospitalization)
  Sender: FDA-Public Use
  Company Number: US-SHR-US-2007-009848

PATIENT
  Age: 60 Year
  Sex: Female
  Weight: 70.295 kg

DRUGS (4)
  1. BETASERON [Suspect]
     Indication: RELAPSING-REMITTING MULTIPLE SCLEROSIS
     Dosage: 8 MIU, EVERY 2D
     Route: 058
     Dates: start: 19950614
  2. LOTREL [Concomitant]
     Dosage: 1 TAB(S), 1X/DAY, 5/20 MG
  3. DETROL [Concomitant]
     Dosage: 2 MG, 3X/DAY
     Dates: start: 19930101
  4. HYDROCODONE BITARTRATE [Concomitant]
     Indication: PAIN
     Dosage: 1 TAB(S), 1X/DAY,5/500
     Dates: start: 19960101

REACTIONS (6)
  - BALANCE DISORDER [None]
  - CYST [None]
  - FALL [None]
  - GAIT DISTURBANCE [None]
  - PAIN [None]
  - SPINAL FRACTURE [None]
